FAERS Safety Report 14459659 (Version 3)
Quarter: 2018Q1

REPORT INFORMATION
  Report Type: Spontaneous
  Country: JP (occurrence: JP)
  Receive Date: 20180130
  Receipt Date: 20180309
  Transmission Date: 20180509
  Serious: Yes (Hospitalization)
  Sender: FDA-Public Use
  Company Number: JP-SA-2018SA022390

PATIENT
  Age: 17 Year
  Sex: Male

DRUGS (13)
  1. CEFTAZIDIME. [Suspect]
     Active Substance: CEFTAZIDIME
     Indication: PSEUDOMONAS INFECTION
     Route: 065
  2. CEFTRIAXONE SODIUM. [Suspect]
     Active Substance: CEFTRIAXONE SODIUM
     Indication: INFECTION
     Route: 065
  3. LINEZOLID. [Suspect]
     Active Substance: LINEZOLID
     Indication: INFECTION
     Route: 065
  4. CEFAZOLIN SODIUM. [Suspect]
     Active Substance: CEFAZOLIN SODIUM
     Indication: URINARY TRACT INFECTION
     Route: 065
  5. PITRESSIN [Suspect]
     Active Substance: VASOPRESSIN
     Indication: DIABETES INSIPIDUS
     Route: 065
  6. FOSPHENYTOIN SODIUM. [Suspect]
     Active Substance: FOSPHENYTOIN SODIUM
     Indication: CLONIC CONVULSION
     Route: 065
  7. CEFEPIME HYDROCHLORIDE. [Concomitant]
     Active Substance: CEFEPIME HYDROCHLORIDE
     Route: 065
  8. MEROPENEM. [Suspect]
     Active Substance: MEROPENEM
     Indication: WOUND INFECTION
     Route: 065
  9. VANCOMYCIN [Suspect]
     Active Substance: VANCOMYCIN
     Indication: WOUND INFECTION
     Route: 065
  10. CRAVIT [Suspect]
     Active Substance: LEVOFLOXACIN
     Indication: INFECTION
     Route: 065
  11. TRIMETHOPRIM/SULFAMETHOXAZOLE [Suspect]
     Active Substance: SULFAMETHOXAZOLE\TRIMETHOPRIM
     Indication: INFECTION
     Route: 065
  12. CEFOTAXIME SODIUM [Suspect]
     Active Substance: CEFOTAXIME SODIUM
     Indication: INFECTION PROPHYLAXIS
     Route: 065
  13. GLYCERIN. [Concomitant]
     Active Substance: GLYCERIN
     Indication: INTRACRANIAL PRESSURE INCREASED
     Route: 065

REACTIONS (21)
  - Histiocytosis haematophagic [Recovered/Resolved]
  - Breath sounds abnormal [None]
  - Febrile neutropenia [None]
  - Blood creatine phosphokinase increased [None]
  - Blood creatinine increased [None]
  - Staphylococcal infection [None]
  - Hepatic function abnormal [Unknown]
  - Urinary tract infection [Unknown]
  - Urinary tract infection pseudomonal [None]
  - Device related infection [None]
  - Respiratory rate increased [None]
  - Alanine aminotransferase increased [None]
  - Aspartate aminotransferase increased [None]
  - Blood chloride increased [None]
  - Renal impairment [None]
  - Blood urea increased [None]
  - Protein total decreased [None]
  - Altered state of consciousness [None]
  - Heart rate increased [None]
  - Blood pressure diastolic increased [None]
  - Blood potassium increased [None]
